FAERS Safety Report 6699190-X (Version None)
Quarter: 2010Q2

REPORT INFORMATION
  Report Type: 
  Country: None (occurrence: None)
  Receive Date: 20100421
  Receipt Date: 20090619
  Transmission Date: 20101027
  Serious: Yes (Other)
  Sender: FDA-Public Use
  Company Number: 20090268

PATIENT
  Age: 30 Year
  Sex: Female
  Weight: 52.6173 kg

DRUGS (2)
  1. DEXFERRUM [Suspect]
     Dosage: INTRAVENOUS
     Route: 042
  2. DEXFERRUM [Suspect]
     Dosage: INTRAVENOUS
     Route: 042

REACTIONS (2)
  - CHILLS [None]
  - PRURITUS [None]
